FAERS Safety Report 6247804-0 (Version None)
Quarter: 2009Q2

REPORT INFORMATION
  Report Type: 
  Country: None (occurrence: None)
  Receive Date: 20090626
  Receipt Date: 20090617
  Transmission Date: 20091009
  Serious: Yes (Other)
  Sender: FDA-Public Use
  Company Number: PHHY2009GB25022

PATIENT
  Sex: Female
  Weight: 75 kg

DRUGS (7)
  1. ALISKIREN [Suspect]
     Indication: HYPERTENSION
     Dosage: 150 MG/DAY
     Route: 048
     Dates: start: 20080229, end: 20080417
  2. AMLODIPINE [Concomitant]
     Indication: HYPERTENSION
     Dosage: 10 MG/DAY
     Route: 048
     Dates: start: 20051201
  3. RAMIPRIL [Concomitant]
     Indication: HYPERTENSION
     Dosage: 10MG/DAY
     Route: 048
     Dates: start: 20060201
  4. ATORVASTATIN [Concomitant]
     Indication: HYPERLIPIDAEMIA
     Dosage: 20MG/DAY
     Route: 048
     Dates: start: 20080501
  5. DIPYRIDAMOLE [Concomitant]
     Indication: TRANSIENT ISCHAEMIC ATTACK
     Dosage: 100 MG
     Route: 062
     Dates: start: 19940301
  6. DOXAZOSIN MESYLATE [Concomitant]
     Indication: HYPERTENSION
     Dosage: 160 MG
     Route: 048
     Dates: start: 20060401
  7. MOXONIDINE [Concomitant]
     Indication: HYPERTENSION
     Dosage: 400 UG, QD
     Route: 048
     Dates: start: 20060901

REACTIONS (2)
  - BLOOD CREATININE INCREASED [None]
  - RENAL IMPAIRMENT [None]
